FAERS Safety Report 7331209-5 (Version None)
Quarter: 2011Q1

REPORT INFORMATION
  Report Type: 
  Country: None (occurrence: None)
  Receive Date: 20110304
  Receipt Date: 20110225
  Transmission Date: 20110831
  Serious: Yes (Other)
  Sender: FDA-Public Use
  Company Number: DE-PFIZER INC-2011041479

PATIENT
  Age: 29 Year
  Sex: Female

DRUGS (1)
  1. DEPO-CLINOVIR [Suspect]

REACTIONS (2)
  - PROLACTINOMA [None]
  - AMENORRHOEA [None]
